FAERS Safety Report 5063617-X (Version None)
Quarter: 2006Q3

REPORT INFORMATION
  Report Type: 
  Country: None (occurrence: None)
  Receive Date: 20060724
  Receipt Date: 20060711
  Transmission Date: 20061208
  Serious: Yes (Congenital Anomaly)
  Sender: FDA-Public Use
  Company Number: 06H-163-0309240-00

PATIENT
  Sex: Female

DRUGS (6)
  1. MAGNESIUM SULFATE [Suspect]
     Dosage: TRANSPLACENTAL
     Route: 064
  2. SPIRONOLACTONE [Concomitant]
  3. CHLOROTHIAZIDE [Concomitant]
  4. DEXAMETHASONE [Concomitant]
  5. OXYGEN (OXYGEN) [Concomitant]
  6. DIURETICS (DIURETICS) [Concomitant]

REACTIONS (14)
  - BONE DENSITY DECREASED [None]
  - BONE DEVELOPMENT ABNORMAL [None]
  - CONGENITAL ANOMALY [None]
  - CRANIOTABES [None]
  - DELAYED FONTANELLE CLOSURE [None]
  - DRUG EXPOSURE DURING PREGNANCY [None]
  - DRUG TOXICITY [None]
  - HUMERUS FRACTURE [None]
  - MULTIPLE FRACTURES [None]
  - NEONATAL DISORDER [None]
  - OSTEOPENIA [None]
  - RADIUS FRACTURE [None]
  - TIBIA FRACTURE [None]
  - ULNA FRACTURE [None]
